FAERS Safety Report 5897407-2 (Version None)
Quarter: 2008Q3

REPORT INFORMATION
  Report Type: 
  Country: None (occurrence: None)
  Receive Date: 20080925
  Receipt Date: 20080915
  Transmission Date: 20090109
  Serious: Yes (Other)
  Sender: FDA-Public Use
  Company Number: US-JNJFOC-20080904312

PATIENT
  Age: 85 Year
  Sex: Male

DRUGS (1)
  1. HALDOL [Suspect]
     Indication: DRUG USE FOR UNKNOWN INDICATION
     Route: 030

REACTIONS (12)
  - ANURIA [None]
  - APHASIA [None]
  - INCORRECT DOSE ADMINISTERED [None]
  - INCORRECT ROUTE OF DRUG ADMINISTRATION [None]
  - MUSCLE SPASMS [None]
  - PARKINSON'S DISEASE [None]
  - POLLAKIURIA [None]
  - RESPIRATORY ARREST [None]
  - TARDIVE DYSKINESIA [None]
  - VASCULAR RUPTURE [None]
  - VISION BLURRED [None]
  - WHEEZING [None]
